FAERS Safety Report 15143245 (Version 2)
Quarter: 2018Q3

REPORT INFORMATION
  Report Type: Spontaneous
  Country: US (occurrence: US)
  Receive Date: 20180713
  Receipt Date: 20180718
  Transmission Date: 20181010
  Serious: Yes (Other)
  Sender: FDA-Public Use
  Company Number: US-PFIZER INC-2018278720

PATIENT
  Sex: Male

DRUGS (2)
  1. ISUPREL [Suspect]
     Active Substance: ISOPROTERENOL HYDROCHLORIDE
     Dosage: 2 MCG THEN 3 MCG 5 MINS LATER, ANOTHER 2 MCG 15 MINS LATER
  2. ISUPREL [Suspect]
     Active Substance: ISOPROTERENOL HYDROCHLORIDE
     Dosage: 2 MCG THEN 3 MCG 5 MINS LATER, ANOTHER 2 MCG 15 MINS LATER

REACTIONS (2)
  - Heart rate decreased [Unknown]
  - Drug ineffective [Unknown]

NARRATIVE: CASE EVENT DATE: 20151210
